FAERS Safety Report 8596080 (Version 2)
Quarter: 2012Q4

REPORT INFORMATION
  Report Type: 
  Country: US (occurrence: US)
  Receive Date: 20120605
  Receipt Date: 20121019
  Transmission Date: 20130627
  Serious: Yes (Hospitalization, Disabling)
  Sender: FDA-Public Use
  Company Number: US-BAYER-2012-054840

PATIENT
  Age: 40 Year
  Sex: Female
  Weight: 113.38 kg

DRUGS (1)
  1. YAZ [Suspect]
     Dosage: UNK
     Dates: start: 201002, end: 201111

REACTIONS (8)
  - Deep vein thrombosis [None]
  - Leg amputation [None]
  - Emotional distress [None]
  - Fear [None]
  - Pain [None]
  - General physical health deterioration [None]
  - Anxiety [None]
  - Anhedonia [None]
